FAERS Safety Report 12663414 (Version 1)
Quarter: 2016Q3

REPORT INFORMATION
  Report Type: Spontaneous
  Country: US (occurrence: US)
  Receive Date: 20160818
  Receipt Date: 20160818
  Transmission Date: 20161109
  Serious: No
  Sender: FDA-Public Use
  Company Number: US-AMGEN-USASP2016105936

PATIENT
  Age: 36 Year
  Sex: Female

DRUGS (1)
  1. ENBREL [Suspect]
     Active Substance: ETANERCEPT
     Indication: RHEUMATOID ARTHRITIS
     Dosage: 1 DF, QWK
     Route: 065

REACTIONS (6)
  - Injection site warmth [Unknown]
  - Injection site mass [Unknown]
  - Wrong technique in product usage process [Unknown]
  - Injection site pain [Unknown]
  - Injection site urticaria [Unknown]
  - Injection site erythema [Unknown]

NARRATIVE: CASE EVENT DATE: 201608
